FAERS Safety Report 17008547 (Version 1)
Quarter: 2019Q4

REPORT INFORMATION
  Report Type: Spontaneous
  Country: US (occurrence: US)
  Receive Date: 20191108
  Receipt Date: 20191108
  Transmission Date: 20200122
  Serious: Yes (Life-Threatening, Other)
  Sender: FDA-Public Use
  Company Number: US-MYLANLABS-2019M1105665

PATIENT
  Age: 51 Year
  Sex: Male
  Weight: 102.49 kg

DRUGS (2)
  1. CISPLATIN W/ETOPOSIDE [Concomitant]
     Active Substance: CISPLATIN\ETOPOSIDE
     Dosage: UNK
     Route: 042
  2. FULPHILA [Suspect]
     Active Substance: PEGFILGRASTIM-JMDB
     Indication: FEBRILE NEUTROPENIA
     Dosage: 6 MILLIGRAM, ONCE
     Route: 058
     Dates: start: 2019, end: 2019

REACTIONS (1)
  - Anaphylactic reaction [Recovered/Resolved]

NARRATIVE: CASE EVENT DATE: 20191010
